FAERS Safety Report 7716253-8 (Version None)
Quarter: 2011Q3

REPORT INFORMATION
  Report Type: 
  Country: None (occurrence: None)
  Receive Date: 20110812
  Receipt Date: 20101123
  Transmission Date: 20111222
  Serious: Yes (Other)
  Sender: FDA-Public Use
  Company Number: 2010SP061673

PATIENT
  Sex: Male

DRUGS (1)
  1. REMERON [Suspect]
     Indication: PRODUCT USED FOR UNKNOWN INDICATION
     Dates: start: 20101109

REACTIONS (4)
  - AMNESIA [None]
  - CONSTIPATION [None]
  - DYSGRAPHIA [None]
  - DYSARTHRIA [None]
